FAERS Safety Report 7190518-3 (Version None)
Quarter: 2010Q4

REPORT INFORMATION
  Report Type: 
  Country: None (occurrence: None)
  Receive Date: 20101223
  Receipt Date: 20101216
  Transmission Date: 20110411
  Serious: Yes (Hospitalization)
  Sender: FDA-Public Use
  Company Number: MX-ELI_LILLY_AND_COMPANY-MX201012004493

PATIENT
  Sex: Female

DRUGS (1)
  1. HUMATROPE [Suspect]
     Indication: MUSCLE MASS
     Dosage: UNK, UNKNOWN
     Route: 065
     Dates: start: 20080101

REACTIONS (4)
  - HYPERTENSION [None]
  - KIDNEY INFECTION [None]
  - OFF LABEL USE [None]
  - TACHYCARDIA [None]
